FAERS Safety Report 6334873-2 (Version None)
Quarter: 2009Q3

REPORT INFORMATION
  Report Type: 
  Country: None (occurrence: None)
  Receive Date: 20090831
  Receipt Date: 20090824
  Transmission Date: 20100115
  Serious: Yes (Hospitalization)
  Sender: FDA-Public Use
  Company Number: DE-AVENTIS-200912160DE

PATIENT
  Age: 59 Year
  Sex: Female
  Weight: 58 kg

DRUGS (8)
  1. DOCETAXEL [Suspect]
     Route: 042
     Dates: start: 20090722, end: 20090722
  2. CYCLOPHOSPHAMIDE [Suspect]
     Route: 042
     Dates: start: 20090722, end: 20090722
  3. DEXAMETHASONE [Suspect]
     Indication: PROPHYLAXIS
     Dosage: DOSE: VAGUE
  4. ZOFRAN [Concomitant]
     Indication: PROPHYLAXIS
     Dosage: DOSE: VAGUE
  5. EMEND [Concomitant]
     Indication: PROPHYLAXIS
     Dosage: DOSE: VAGUE
  6. UROMITEXAN [Concomitant]
     Indication: PROPHYLAXIS
     Dosage: DOSE: VAGUE
  7. VERGENTAN [Concomitant]
     Indication: PROPHYLAXIS
     Dosage: DOSE: VAGUE
  8. PANTOZOL                           /01263202/ [Concomitant]
     Indication: DRUG USE FOR UNKNOWN INDICATION
     Dates: start: 20090729

REACTIONS (3)
  - LEUKOCYTOSIS [None]
  - LEUKOPENIA [None]
  - NEUTROPENIA [None]
